FAERS Safety Report 9409844 (Version 1)
Quarter: 2013Q3

REPORT INFORMATION
  Report Type: Report from Study
  Country: JP (occurrence: JP)
  Receive Date: 20130719
  Receipt Date: 20130719
  Transmission Date: 20140515
  Serious: Yes (Hospitalization)
  Sender: FDA-Public Use
  Company Number: JP-PFIZER INC-2013208041

PATIENT
  Age: 74 Year
  Sex: Male

DRUGS (8)
  1. AMLODIPINE BESILATE [Suspect]
     Indication: HYPERTENSION
     Dosage: UNK
     Dates: start: 20110126, end: 20120823
  2. BLINDED THERAPY [Suspect]
  3. BENZBROMARONE [Suspect]
     Indication: GOUT
     Dosage: UNK
     Dates: start: 20110126, end: 20120805
  4. LACTOMIN [Suspect]
     Indication: CONSTIPATION
     Dosage: UNK
     Dates: start: 20120805, end: 20120806
  5. PROCHLORPERAZINE MALEATE [Concomitant]
     Indication: PROPHYLAXIS OF NAUSEA AND VOMITING
     Dosage: UNK
     Dates: start: 20120807, end: 20120812
  6. MAGNESIUM OXIDE [Concomitant]
     Indication: CONSTIPATION
     Dosage: UNK
     Dates: start: 20120808
  7. SENNOSIDES A AND B [Concomitant]
     Indication: CONSTIPATION
     Dosage: UNK
     Dates: start: 20120809, end: 20120809
  8. FERROUS CITRATE SODIUM [Concomitant]
     Indication: ANAEMIA
     Dosage: UNK
     Dates: start: 20120907, end: 20120907

REACTIONS (2)
  - Abdominal pain [Not Recovered/Not Resolved]
  - Blood lactate dehydrogenase increased [Not Recovered/Not Resolved]
